FAERS Safety Report 10198854 (Version 2)
Quarter: 2014Q3

REPORT INFORMATION
  Report Type: Spontaneous
  Country: BR (occurrence: BR)
  Receive Date: 20140527
  Receipt Date: 20140704
  Transmission Date: 20150326
  Serious: Yes (Other)
  Sender: FDA-Public Use
  Company Number: BR-ASTRAZENECA-2014SE34975

PATIENT
  Age: 43 Year
  Sex: Female

DRUGS (6)
  1. OMEPRAZOLE. [Suspect]
     Active Substance: OMEPRAZOLE
     Indication: GASTRIC DISORDER
     Dosage: DAILY
     Route: 048
     Dates: start: 201401
  2. ALLURENE [Suspect]
     Active Substance: DIENOGEST
     Indication: ENDOMETRIOSIS
     Dosage: DAILY
     Route: 048
     Dates: start: 201401
  3. VONAU [Concomitant]
     Indication: NAUSEA
     Dosage: AS REQUIRED
     Route: 048
     Dates: start: 201401
  4. ZOLADEX [Suspect]
     Active Substance: GOSERELIN ACETATE
     Indication: ENDOMETRIOSIS
     Route: 058
     Dates: start: 20140516
  5. NOVALGIN [Concomitant]
     Active Substance: METAMIZOLE SODIUM
     Indication: ENDOMETRIOSIS
     Dosage: AS REQUIRED
     Route: 048
     Dates: start: 201401
  6. NEUTROFER [Concomitant]
     Active Substance: FERROUS BISGLYCINATE
     Indication: ANAEMIA
     Route: 048
     Dates: start: 201401

REACTIONS (2)
  - Condition aggravated [Recovering/Resolving]
  - Endometriosis [Recovering/Resolving]

NARRATIVE: CASE EVENT DATE: 2014
